FAERS Safety Report 7147925-4 (Version None)
Quarter: 2010Q4

REPORT INFORMATION
  Report Type: 
  Country: None (occurrence: None)
  Receive Date: 20101209
  Receipt Date: 20101201
  Transmission Date: 20110411
  Serious: Yes (Other)
  Sender: FDA-Public Use
  Company Number: US-JNJFOC-20101105139

PATIENT
  Age: 83 Year
  Sex: Female

DRUGS (1)
  1. ULTRACET [Suspect]
     Indication: ILL-DEFINED DISORDER
     Route: 065

REACTIONS (2)
  - ANAPHYLACTIC SHOCK [None]
  - ORAL PAIN [None]
